FAERS Safety Report 8958845 (Version 1)
Quarter: 2012Q4

REPORT INFORMATION
  Report Type: 
  Country: US (occurrence: US)
  Receive Date: 20121212
  Receipt Date: 20121212
  Transmission Date: 20130627
  Serious: Yes (Death, Hospitalization)
  Sender: FDA-Public Use
  Company Number: US-ELI_LILLY_AND_COMPANY-US201211009277

PATIENT
  Age: 28 Year
  Sex: Male

DRUGS (4)
  1. STRATTERA [Suspect]
     Indication: ATTENTION DEFICIT/HYPERACTIVITY DISORDER
     Dosage: 25 mg, qd
  2. STRATTERA [Suspect]
     Dosage: 40 mg, qd
  3. STRATTERA [Suspect]
     Dosage: 60 mg, qd
  4. KLONOPIN [Concomitant]

REACTIONS (2)
  - Death [Fatal]
  - Depression [Unknown]
